FAERS Safety Report 4548106-0 (Version None)
Quarter: 2005Q1

REPORT INFORMATION
  Report Type: 
  Country: None (occurrence: None)
  Receive Date: 20041220
  Receipt Date: 20040921
  Transmission Date: 20050727
  Serious: Yes (Other)
  Sender: FDA-Public Use
  Company Number: 2004069054

PATIENT
  Age: 53 Year
  Sex: Male

DRUGS (6)
  1. VFEND [Suspect]
     Indication: ANTI-INFECTIVE THERAPY
     Dosage: 400 MG (200 MG, 2 IN 1 D, ORAL)
     Route: 048
     Dates: start: 20040801
  2. BACTRIM [Concomitant]
  3. CYCLOSPORINE [Concomitant]
  4. BUSULFAN [Concomitant]
  5. CYCLOPHOSPHAMIDE [Concomitant]
  6. VALACICLOVIR HYDROCHLORIDE (VALACICLOVIR HYDROCHLORIDE) [Concomitant]

REACTIONS (1)
  - ELECTROCARDIOGRAM QT PROLONGED [None]
